FAERS Safety Report 6404589-2 (Version None)
Quarter: 2009Q4

REPORT INFORMATION
  Report Type: 
  Country: None (occurrence: None)
  Receive Date: 20091016
  Receipt Date: 20091006
  Transmission Date: 20100525
  Serious: Yes (Hospitalization)
  Sender: FDA-Public Use
  Company Number: US-JNJFOC-20091002465

PATIENT
  Sex: Male
  Weight: 63.5 kg

DRUGS (7)
  1. REMICADE [Suspect]
     Route: 042
  2. REMICADE [Suspect]
     Route: 042
  3. REMICADE [Suspect]
     Indication: CROHN'S DISEASE
     Route: 042
  4. METHOTREXATE [Concomitant]
     Indication: CROHN'S DISEASE
     Dosage: STARTED FEB OR MAR-2009
  5. PREVACID [Concomitant]
     Indication: CROHN'S DISEASE
  6. FERROUS IRON SUPPLEMENT [Concomitant]
     Indication: CROHN'S DISEASE
  7. TUMS [Concomitant]
     Indication: CROHN'S DISEASE

REACTIONS (1)
  - INFLUENZA [None]
